FAERS Safety Report 21706168 (Version 7)
Quarter: 2025Q4

REPORT INFORMATION
  Report Type: Spontaneous
  Country: US (occurrence: US)
  Receive Date: 20221209
  Receipt Date: 20251028
  Transmission Date: 20260119
  Serious: Yes (Other)
  Sender: PFIZER
  Company Number: US-PFIZER INC-202201359959

PATIENT
  Age: 71 Year
  Sex: Female
  Weight: 66.667 kg

DRUGS (5)
  1. IBRANCE [Suspect]
     Active Substance: PALBOCICLIB
     Indication: Breast cancer metastatic
     Dosage: ONCE DAILY WITH OR WITHOUT FOOD FOR 21 DAYS ON AND 7 DAYS OFF
     Route: 048
  2. IBRANCE [Suspect]
     Active Substance: PALBOCICLIB
     Dosage: ONCE DAILY WITH FOOD 21 DAYS ON 7 DAYS OFF
     Route: 048
     Dates: start: 201507
  3. FASLODEX [Concomitant]
     Active Substance: FULVESTRANT
     Dosage: UNK
     Dates: start: 20191001
  4. FEMARA [Concomitant]
     Active Substance: LETROZOLE
     Dosage: UNK
     Dates: start: 201507, end: 201812
  5. XGEVA [Concomitant]
     Active Substance: DENOSUMAB
     Dosage: UNK
     Dates: start: 201610, end: 2017

REACTIONS (5)
  - Tooth disorder [Unknown]
  - Illness [Unknown]
  - Suspected COVID-19 [Unknown]
  - Memory impairment [Unknown]
  - White blood cell disorder [Unknown]
